FAERS Safety Report 6105246-2 (Version None)
Quarter: 2009Q1

REPORT INFORMATION
  Report Type: 
  Country: None (occurrence: None)
  Receive Date: 20090304
  Receipt Date: 20090220
  Transmission Date: 20090719
  Serious: Yes (Other)
  Sender: FDA-Public Use
  Company Number: 2009-00659

PATIENT
  Age: 66 Year
  Sex: Female

DRUGS (5)
  1. VELCADE [Suspect]
     Indication: MULTIPLE MYELOMA
  2. DEXAMETHASONE TAB [Suspect]
     Indication: MULTIPLE MYELOMA
  3. REVLIMID [Suspect]
     Indication: MULTIPLE MYELOMA
     Dosage: 25 MG, ORAL; 15MG, ORAL
     Route: 048
     Dates: start: 20080630, end: 20081001
  4. DARBEPOETIN ALFA (DARBEPOETIN ALFA ) [Concomitant]
  5. ASPIRIN [Concomitant]

REACTIONS (2)
  - DEEP VEIN THROMBOSIS [None]
  - DISEASE PROGRESSION [None]
